FAERS Safety Report 7468370-8 (Version None)
Quarter: 2011Q2

REPORT INFORMATION
  Report Type: 
  Country: None (occurrence: None)
  Receive Date: 20110509
  Receipt Date: 20110504
  Transmission Date: 20111010
  Serious: Yes (Hospitalization, Other)
  Sender: FDA-Public Use
  Company Number: US-PFIZER INC-2011096833

PATIENT

DRUGS (2)
  1. LYRICA [Suspect]
     Dosage: 75 MG DAILY
     Dates: start: 20110401, end: 20110401
  2. LYRICA [Suspect]
     Dosage: 150 MG, DAILY
     Dates: start: 20110401

REACTIONS (2)
  - DYSTONIA [None]
  - MOTOR DYSFUNCTION [None]
